FAERS Safety Report 8337465-9 (Version None)
Quarter: 2012Q2

REPORT INFORMATION
  Report Type: 
  Country: None (occurrence: None)
  Receive Date: 20120504
  Receipt Date: 20120425
  Transmission Date: 20120825
  Serious: Yes (Other)
  Sender: FDA-Public Use
  Company Number: US-PFIZER INC-2012102429

PATIENT
  Age: 52 Year
  Sex: Female

DRUGS (7)
  1. PRAVASTATIN SODIUM [Suspect]
     Indication: BLOOD CHOLESTEROL INCREASED
     Dosage: UNK, DAILY
     Route: 048
     Dates: start: 20110701
  2. LOVAZA [Suspect]
     Indication: BLOOD TRIGLYCERIDES INCREASED
  3. TRICOR [Suspect]
     Indication: BLOOD CHOLESTEROL INCREASED
     Dosage: UNK, DAILY
     Dates: end: 20110701
  4. PREMARIN [Suspect]
     Indication: BLOOD OESTROGEN DECREASED
  5. LOVAZA [Suspect]
     Indication: BLOOD CHOLESTEROL INCREASED
     Dosage: UNK, 2X/DAY
     Route: 048
  6. PREMARIN [Suspect]
     Indication: MENOPAUSE
     Dosage: ^0.625 MG/G^, DAILY (ON A SCHEDULE OF THREE)
     Route: 067
     Dates: start: 20120201
  7. PREMARIN [Concomitant]
     Indication: BLOOD OESTROGEN DECREASED
     Dosage: UNK
     Route: 048
     Dates: start: 20120101

REACTIONS (7)
  - ARTHRALGIA [None]
  - BACK PAIN [None]
  - CIRCUMSTANCE OR INFORMATION CAPABLE OF LEADING TO MEDICATION ERROR [None]
  - DYSURIA [None]
  - PAIN IN EXTREMITY [None]
  - LIVER DISORDER [None]
  - HEPATIC ENZYME INCREASED [None]
